FAERS Safety Report 15009980 (Version 16)
Quarter: 2021Q1

REPORT INFORMATION
  Report Type: Spontaneous
  Country: US (occurrence: US)
  Receive Date: 20180614
  Receipt Date: 20210219
  Transmission Date: 20210419
  Serious: No
  Sender: FDA-Public Use
  Company Number: US-PFIZER INC-2018239430

PATIENT
  Age: 55 Year
  Sex: Female
  Weight: 77 kg

DRUGS (6)
  1. LYRICA [Suspect]
     Active Substance: PREGABALIN
     Dosage: 75 MG, 3X/DAY
  2. LYRICA [Suspect]
     Active Substance: PREGABALIN
     Indication: FIBROMYALGIA
     Dosage: 75 MG, 4X/DAY
     Route: 048
     Dates: start: 2017
  3. LYRICA [Suspect]
     Active Substance: PREGABALIN
     Indication: NEURALGIA
     Dosage: 375 MG, DAILY (2 CAPSULES BY MOUTH EVERY MORNING AND 1 CAPSULE AT NOON AND 2 CAPSULE AT BEDTIME)
     Route: 048
     Dates: start: 20190404, end: 2019
  4. LYRICA [Suspect]
     Active Substance: PREGABALIN
     Indication: POLYNEUROPATHY
     Dosage: 375 MG, DAILY (5 TIMES DAILY)
     Route: 048
     Dates: start: 2019
  5. LYRICA [Suspect]
     Active Substance: PREGABALIN
     Dosage: 75 MG, 4X/DAY
     Route: 048
  6. GABAPENTIN. [Concomitant]
     Active Substance: GABAPENTIN
     Dosage: UNK

REACTIONS (6)
  - Product dispensing error [Unknown]
  - Nightmare [Unknown]
  - Nervous system disorder [Recovered/Resolved]
  - Pain [Unknown]
  - Back disorder [Recovered/Resolved]
  - Intentional product misuse [Unknown]
